FAERS Safety Report 7897791-4 (Version None)
Quarter: 2011Q4

REPORT INFORMATION
  Report Type: 
  Country: None (occurrence: None)
  Receive Date: 20111107
  Receipt Date: 20111101
  Transmission Date: 20120403
  Serious: Yes (Hospitalization, Other)
  Sender: FDA-Public Use
  Company Number: SE-AMGEN-SWESP2011048938

PATIENT
  Age: 83 Year
  Sex: Female
  Weight: 70 kg

DRUGS (7)
  1. FUROSEMIDE [Concomitant]
     Dosage: 250 MG, QD
     Route: 048
     Dates: start: 20080403, end: 20110919
  2. PROLIA [Suspect]
     Indication: OSTEOPOROSIS
     Dosage: 60 MG, UNK
     Route: 058
     Dates: start: 20110830, end: 20110916
  3. POTASSIUM CHLORIDE [Concomitant]
     Indication: BLOOD POTASSIUM ABNORMAL
     Dosage: 750 MG, BID
     Route: 048
     Dates: start: 20110904, end: 20110926
  4. NOVOLOG MIX 70/30 [Concomitant]
     Indication: DIABETES MELLITUS
     Dosage: 8 IU, QD
     Route: 058
     Dates: start: 20110517, end: 20110926
  5. METOLAZON [Concomitant]
     Dosage: 2.5 MG, QD
     Route: 048
     Dates: start: 20110824, end: 20110920
  6. CALCIUM CARBONATE [Concomitant]
     Dosage: UNK
  7. OMEPRAZOLE [Concomitant]
     Indication: GASTRIC ULCER
     Dosage: 20 MG, QD
     Route: 048
     Dates: start: 20050321, end: 20110926

REACTIONS (4)
  - ORTHOSTATIC HYPOTENSION [None]
  - BLOOD POTASSIUM ABNORMAL [None]
  - RENAL FAILURE [None]
  - HYPOCALCAEMIA [None]
